FAERS Safety Report 5419735-7 (Version None)
Quarter: 2007Q3

REPORT INFORMATION
  Report Type: 
  Country: None (occurrence: None)
  Receive Date: 20070820
  Receipt Date: 20070810
  Transmission Date: 20080115
  Serious: No
  Sender: FDA-Public Use
  Company Number: FR-BAXTER-2007BH006993

PATIENT
  Sex: Male

DRUGS (5)
  1. RECOMBINATE [Suspect]
     Indication: HAEMOPHILIA
     Dosage: DOSE UNIT:UNKNOWN
     Route: 065
     Dates: start: 20010101
  2. LOPINAVIR [Concomitant]
  3. RITONAVIR [Concomitant]
  4. SUSTIVA [Concomitant]
  5. DEPAKENE [Concomitant]

REACTIONS (1)
  - PANCREATITIS ACUTE [None]
